FAERS Safety Report 6280055-2 (Version None)
Quarter: 2009Q3

REPORT INFORMATION
  Report Type: 
  Country: None (occurrence: None)
  Receive Date: 20090723
  Receipt Date: 20080115
  Transmission Date: 20100115
  Serious: Yes (Hospitalization, Other)
  Sender: FDA-Public Use
  Company Number: US-ASTRAZENECA-2007UW19771

PATIENT
  Age: 42 Year
  Sex: Male
  Weight: 100.7 kg

DRUGS (31)
  1. SEROQUEL [Suspect]
     Indication: BIPOLAR DISORDER
     Route: 048
     Dates: start: 20040201, end: 20050801
  2. SEROQUEL [Suspect]
     Dosage: 100-200 MG
     Route: 048
     Dates: start: 20040201
  3. ABILIFY [Concomitant]
     Route: 048
  4. ZYPREXA [Concomitant]
     Route: 048
     Dates: start: 19990101, end: 20010101
  5. TRAZODONE HCL [Concomitant]
     Route: 048
  6. CITALOPRAM HYDROBROMIDE [Concomitant]
     Route: 048
  7. CHROMIUM [Concomitant]
     Route: 048
  8. HYDROXYZINEPAN [Concomitant]
  9. METHADONE HCL [Concomitant]
  10. DEPAKOTE [Concomitant]
  11. WELLBUTRIN [Concomitant]
  12. PAXIL [Concomitant]
  13. BACLOFEN [Concomitant]
     Dosage: 10 MG, DISPENSED
  14. LANTUS [Concomitant]
     Dosage: 35-40 MG UNITS PER DAY
     Dates: start: 20060118
  15. GLIPIZIDE [Concomitant]
     Route: 048
     Dates: start: 20060809
  16. CELEXA [Concomitant]
  17. PEG-INTRON [Concomitant]
     Dosage: 150 MCG, ONCE A WEEK
  18. ROBAXIN [Concomitant]
     Dates: start: 20060125
  19. CYMBALTA [Concomitant]
     Dosage: 30-60 MG
     Dates: start: 20060303
  20. VIAGRA [Concomitant]
     Dosage: 25-50 MG
     Dates: start: 20060118
  21. HUMALOG [Concomitant]
     Dosage: STRENGTH-100 UNITS/ML
     Dates: start: 20060728
  22. ALTACE [Concomitant]
     Route: 048
  23. BENADRYL [Concomitant]
  24. AMBIEN [Concomitant]
     Route: 048
     Dates: start: 20060809
  25. METFORMIN HYDROCHLORIDE [Concomitant]
     Dosage: 500-1000 MG
     Route: 048
     Dates: start: 20060809
  26. VICODIN [Concomitant]
     Dosage: 500 MG EVERY 4-6 HOURLY AS NEEDED
     Route: 048
     Dates: start: 20060313
  27. NEURONTIN [Concomitant]
     Dosage: 300-1200 MG
     Route: 048
  28. ULTRAM [Concomitant]
     Indication: PAIN
  29. TRILEPTAL [Concomitant]
  30. GLYBURIDE [Concomitant]
     Dosage: 5 MG, DISPENSED
  31. LORAZEPAM [Concomitant]
     Dosage: 0.5 MG, DISPENSED

REACTIONS (7)
  - DIABETES MELLITUS [None]
  - DIABETIC NEUROPATHY [None]
  - NEUROPATHY PERIPHERAL [None]
  - RETINOPATHY [None]
  - SUICIDE ATTEMPT [None]
  - TYPE 1 DIABETES MELLITUS [None]
  - TYPE 2 DIABETES MELLITUS [None]
